FAERS Safety Report 19222649 (Version 2)
Quarter: 2021Q2

REPORT INFORMATION
  Report Type: Spontaneous
  Country: TW (occurrence: TW)
  Receive Date: 20210506
  Receipt Date: 20210602
  Transmission Date: 20210717
  Serious: Yes (Other)
  Sender: FDA-Public Use
  Company Number: TW-PFIZER INC-2021439707

PATIENT
  Age: 64 Year
  Sex: Female

DRUGS (5)
  1. CICLOSPORIN [Suspect]
     Active Substance: CYCLOSPORINE
     Indication: PYODERMA GANGRENOSUM
     Dosage: UP TO 150 MG/DAY
     Dates: start: 201812
  2. PREDNISOLONE. [Suspect]
     Active Substance: PREDNISOLONE
     Indication: PYODERMA GANGRENOSUM
     Dosage: 10?20 MG 1X/DAY
     Dates: start: 201812
  3. METHOTREXATE SODIUM. [Suspect]
     Active Substance: METHOTREXATE SODIUM
     Indication: PYODERMA GANGRENOSUM
     Dosage: 10 MG, WEEKLY
     Dates: start: 201812
  4. HYDROXYCHLOROQUINE [Suspect]
     Active Substance: HYDROXYCHLOROQUINE
     Indication: PYODERMA GANGRENOSUM
     Dosage: 100 MG, 1X/DAY
     Dates: start: 201812
  5. COLCHICINE. [Suspect]
     Active Substance: COLCHICINE
     Indication: PYODERMA GANGRENOSUM
     Dosage: 0.25 MG, 1X/DAY
     Dates: start: 201812

REACTIONS (6)
  - Drug ineffective [Unknown]
  - Off label use [Unknown]
  - Hyperglycaemia [Unknown]
  - Hypertension [Unknown]
  - Cushing^s syndrome [Unknown]
  - Hypertrichosis [Unknown]

NARRATIVE: CASE EVENT DATE: 201812
